FAERS Safety Report 4288772-0 (Version None)
Quarter: 2004Q1

REPORT INFORMATION
  Report Type: 
  Country: None (occurrence: None)
  Receive Date: 20040205
  Receipt Date: 20040120
  Transmission Date: 20041129
  Serious: Yes (Hospitalization)
  Sender: FDA-Public Use
  Company Number: B01200203010

PATIENT
  Age: 55 Year
  Sex: Female

DRUGS (2)
  1. CLOPIDOGREL BISULFATE [Suspect]
     Indication: ISCHAEMIC STROKE
     Dosage: 75 MG QD ORAL
     Route: 048
     Dates: start: 20020327, end: 20021016
  2. CLOPIDOGREL BISULFATE [Suspect]
     Indication: TRANSIENT ISCHAEMIC ATTACK
     Dosage: 75 MG QD ORAL
     Route: 048
     Dates: start: 20020327, end: 20021016

REACTIONS (3)
  - ABDOMINAL PAIN [None]
  - DUODENITIS [None]
  - HYPERGLYCAEMIA [None]
